FAERS Safety Report 9726531 (Version 1)
Quarter: 2013Q4

REPORT INFORMATION
  Report Type: Spontaneous
  Country: US (occurrence: US)
  Receive Date: 20131203
  Receipt Date: 20131203
  Transmission Date: 20140711
  Serious: No
  Sender: FDA-Public Use
  Company Number: US-TEVA-446586USA

PATIENT
  Age: 11 Year
  Sex: Female
  Weight: 33.14 kg

DRUGS (2)
  1. PROAIR HFA [Suspect]
     Indication: COUGH
     Dosage: 2 PUFFS EVERY 4 HOURS AS NEEDED
     Route: 055
  2. PROAIR HFA [Suspect]
     Indication: WHEEZING

REACTIONS (1)
  - Drug administration error [Recovered/Resolved]
